FAERS Safety Report 18868914 (Version 1)
Quarter: 2021Q1

REPORT INFORMATION
  Report Type: Spontaneous
  Country: SE (occurrence: SE)
  Receive Date: 20210209
  Receipt Date: 20210209
  Transmission Date: 20210420
  Serious: Yes (Disabling, Other)
  Sender: FDA-Public Use
  Company Number: SE-009507513-2011SWE003736

PATIENT
  Age: 42 Year
  Sex: Male

DRUGS (20)
  1. MAXALT [Suspect]
     Active Substance: RIZATRIPTAN BENZOATE
     Indication: MIGRAINE WITH AURA
     Dosage: STRENGTH: 10MG, QD, DOSAGE FORM: ORAL LYOPHILISATE
     Dates: start: 20100707, end: 20150710
  2. FOLACIN [Concomitant]
     Dosage: ONCE DAILY
     Route: 048
     Dates: start: 20100201, end: 20141201
  3. ALPOXEN [Concomitant]
     Active Substance: NAPROXEN
     Dosage: THREE TIMES PER DAY AS NEEDED
     Route: 048
     Dates: start: 20091126, end: 20141201
  4. MAXALT [Suspect]
     Active Substance: RIZATRIPTAN BENZOATE
     Dosage: STRENGTH: 10MG, QD, DOSAGE FORM: ORAL LYOPHILISATE
     Dates: start: 20091217, end: 20100511
  5. ZOMIG [Concomitant]
     Active Substance: ZOLMITRIPTAN
     Dosage: ONCE DAILY
     Route: 048
     Dates: start: 20100201, end: 20141201
  6. MAXALT [Suspect]
     Active Substance: RIZATRIPTAN BENZOATE
     Indication: MIGRAINE WITH AURA
     Dosage: UNK UNK, QD
     Dates: start: 20100622, end: 20100707
  7. TIPAROL RETARD [Concomitant]
     Dosage: TWICE DAILY, PROLONGED RELEASE TABLET
     Route: 048
     Dates: start: 20091208, end: 20141201
  8. CITODON (ACETAMINOPHEN (+) CODEINE PHOSPHATE) [Concomitant]
     Active Substance: ACETAMINOPHEN\CODEINE PHOSPHATE
     Dosage: ONE TABLET AS NEEDED
     Route: 048
     Dates: start: 20090313, end: 20141201
  9. NASONEX [Concomitant]
     Active Substance: MOMETASONE FUROATE
     Dosage: STRENGTH: 50 MICROGRAMS PER ACTUATION, DOSE: TWO ACTUATIONS DAILY (QD)
     Route: 045
     Dates: start: 20100302, end: 20141201
  10. INDERAL [Concomitant]
     Active Substance: PROPRANOLOL HYDROCHLORIDE
     Dosage: TWICE DAILY
     Route: 048
     Dates: start: 20100323, end: 20151210
  11. NAPROXEN. [Concomitant]
     Active Substance: NAPROXEN
     Dosage: ONCE DAILY
     Route: 048
     Dates: start: 20100205, end: 20141201
  12. IMIGRAN NOVUM [Concomitant]
     Active Substance: SUMATRIPTAN SUCCINATE
     Dosage: AS NEEDED
     Route: 048
     Dates: start: 20091123, end: 20141201
  13. FLOXACILLIN SODIUM [Concomitant]
     Active Substance: FLUCLOXACILLIN SODIUM ANHYDROUS
     Dosage: THREE TIMES PER DAY
     Route: 048
     Dates: start: 20100619, end: 20100626
  14. MAXALT [Suspect]
     Active Substance: RIZATRIPTAN BENZOATE
     Dosage: STRENGTH: 10MG, AS NEEDED, DOSAGE FORM: ORAL LYOPHILISATE
     Dates: start: 20150710, end: 20201007
  15. IMIGRAN (SUMATRIPTAN) [Concomitant]
     Active Substance: SUMATRIPTAN
     Dosage: UNK, QD
     Dates: start: 20100323, end: 20151210
  16. MAXALT [Suspect]
     Active Substance: RIZATRIPTAN BENZOATE
     Dosage: STRENGTH: 10 MG, ONCE DAILY AS NEEDED; DOSAGE FORM: ORAL LYOPHILISATE
     Dates: start: 20061128, end: 20080228
  17. ZOMIG [Concomitant]
     Active Substance: ZOLMITRIPTAN
     Dosage: 2.5 MILLIGRAM PER ACTUATION, ONCE DAILY
     Route: 045
     Dates: start: 20100205, end: 20141201
  18. ALVEDON [Concomitant]
     Active Substance: ACETAMINOPHEN
     Dosage: THREE TIMES DAILY, MODIFIED RELEASE TABLET
     Route: 048
     Dates: start: 20100201, end: 20151210
  19. MAXALT [Suspect]
     Active Substance: RIZATRIPTAN BENZOATE
     Dosage: STRENGTH: 5 MG, QD, DOSAGE FORM: ORAL LYOPHILISATE
     Dates: start: 20100511, end: 20151210
  20. FLOXACILLIN SODIUM [Concomitant]
     Active Substance: FLUCLOXACILLIN SODIUM ANHYDROUS
     Dosage: UNK
     Route: 048
     Dates: start: 20030115, end: 20100619

REACTIONS (8)
  - Craniocerebral injury [Unknown]
  - Myalgia [Unknown]
  - Tremor [Not Recovered/Not Resolved]
  - Myopathy [Not Recovered/Not Resolved]
  - Fall [Unknown]
  - Muscle spasms [Not Recovered/Not Resolved]
  - Muscular weakness [Unknown]
  - Sleep disorder [Recovering/Resolving]

NARRATIVE: CASE EVENT DATE: 2010
